FAERS Safety Report 7953010-1 (Version None)
Quarter: 2011Q4

REPORT INFORMATION
  Report Type: 
  Country: None (occurrence: None)
  Receive Date: 20111201
  Receipt Date: 20111128
  Transmission Date: 20120403
  Serious: Yes (Hospitalization, Other)
  Sender: FDA-Public Use
  Company Number: CA-ABBOTT-11P-028-0874626-00

PATIENT
  Sex: Female
  Weight: 53.118 kg

DRUGS (9)
  1. EURO D [Concomitant]
     Indication: HORMONE THERAPY
     Route: 048
  2. ASCORBIC ACID [Concomitant]
     Indication: CROHN'S DISEASE
     Route: 048
     Dates: start: 20110301
  3. TEVA-TRAZODONE [Concomitant]
     Indication: SLEEP DISORDER THERAPY
     Route: 048
  4. IRON [Concomitant]
     Indication: CROHN'S DISEASE
     Route: 048
     Dates: start: 20110301
  5. EURO D [Concomitant]
     Indication: BONE DISORDER
  6. NOVO-ALENDRONATE [Concomitant]
     Indication: CROHN'S DISEASE
     Route: 048
     Dates: start: 20110301
  7. HUMIRA [Suspect]
     Indication: CROHN'S DISEASE
     Route: 058
     Dates: start: 20110831
  8. EFFEXOR [Concomitant]
     Indication: SOCIAL PHOBIA
     Route: 048
  9. CALCIUM [Concomitant]
     Indication: OSTEOPOROSIS PROPHYLAXIS
     Route: 048
     Dates: start: 20040101

REACTIONS (6)
  - FISTULA [None]
  - IMMUNODEFICIENCY [None]
  - PYREXIA [None]
  - ABSCESS [None]
  - CYST [None]
  - ESCHERICHIA INFECTION [None]
